FAERS Safety Report 24823681 (Version 8)
Quarter: 2025Q1

REPORT INFORMATION
  Report Type: Spontaneous
  Country: US (occurrence: US)
  Receive Date: 20250109
  Receipt Date: 20250123
  Transmission Date: 20250408
  Serious: Yes (Hospitalization)
  Sender: ROCHE
  Company Number: US-ROCHE-10000173075

PATIENT
  Age: 53 Year
  Sex: Female

DRUGS (5)
  1. XOLAIR PFS [Suspect]
     Active Substance: OMALIZUMAB
     Indication: Urticaria
     Dosage: STRENGTH: 150 MG/ML
     Route: 058
     Dates: start: 20230720
  2. XOLAIR PFS [Suspect]
     Active Substance: OMALIZUMAB
     Indication: Chronic spontaneous urticaria
     Dosage: STRENGTH: 150 MG/ML
     Route: 058
     Dates: start: 202309
  3. XOLAIR PFS [Suspect]
     Active Substance: OMALIZUMAB
     Indication: Angioedema
  4. EPINEPHRINE [Concomitant]
     Active Substance: EPINEPHRINE
  5. ZYRTEC [Concomitant]
     Active Substance: CETIRIZINE HYDROCHLORIDE
     Indication: Chronic spontaneous urticaria

REACTIONS (2)
  - Anaphylactic reaction [Unknown]
  - Mast cell activation syndrome [Unknown]

NARRATIVE: CASE EVENT DATE: 20241223
